FAERS Safety Report 22076949 (Version 18)
Quarter: 2024Q1

REPORT INFORMATION
  Report Type: Spontaneous
  Country: CA (occurrence: CA)
  Receive Date: 20230309
  Receipt Date: 20240130
  Transmission Date: 20240410
  Serious: Yes (Hospitalization, Other)
  Sender: FDA-Public Use
  Company Number: CA-CELLTRION INC.-2023CA004878

PATIENT

DRUGS (17)
  1. INFLECTRA [Suspect]
     Active Substance: INFLIXIMAB-DYYB
     Indication: Colitis ulcerative
     Dosage: 5 MG/KG, 0, 2, 6 WEEKS THEN EVERY 8 WEEKS ROUND DOWN VIAL IF {50MG AND UP VIAL IF }OR= 50MG
     Route: 042
     Dates: start: 20230224
  2. INFLECTRA [Suspect]
     Active Substance: INFLIXIMAB-DYYB
     Dosage: 300 MG, WK 2 INDUCTION (0,2,6 WKS THEN 8 WKS ROUND DOWN VIAL IF {50MG + UP VIAL IF }OR=50MG)
     Route: 042
     Dates: start: 20230310, end: 20230310
  3. INFLECTRA [Suspect]
     Active Substance: INFLIXIMAB-DYYB
     Dosage: 300 MG,  WEEK 6 INDUCTION (0,2,6 WKS THEN 8 WKS ROUND DOWN VIAL IF {50MG + UP VIAL IF }OR=50MG)
     Route: 042
     Dates: start: 20230427
  4. INFLECTRA [Suspect]
     Active Substance: INFLIXIMAB-DYYB
     Dosage: 300 MG, 5 WK AND 5 DAYS (SUPPOSE TO RECEIVED Q 0, 2, 6 WEEKS THEN EVER 8 WEEKS)
     Route: 042
     Dates: start: 20230606
  5. INFLECTRA [Suspect]
     Active Substance: INFLIXIMAB-DYYB
     Dosage: 300 MG (5 MG/KG), 7 WEEKS (SUPPOSED TO RECEIVE 5 MG/KG EVERY 6WEEKS)
     Route: 042
     Dates: start: 20230726, end: 20230726
  6. INFLECTRA [Suspect]
     Active Substance: INFLIXIMAB-DYYB
     Dosage: 340 MG (5MG/KG), 4 WEEKS
     Route: 042
     Dates: start: 20230818, end: 20230818
  7. INFLECTRA [Suspect]
     Active Substance: INFLIXIMAB-DYYB
     Dosage: 690 MG(10MG/KG), AFTER 3 WEEKS (SUPPOSE TO RECEIVE EVERY 4 WEEK), ONE-TIME DOSE
     Route: 042
     Dates: start: 20230908, end: 20230908
  8. INFLECTRA [Suspect]
     Active Substance: INFLIXIMAB-DYYB
     Dosage: 690 MG, (10MG/KG), AFTER 3 WEEKS (SUPPOSE TO RECEIVE EVERY 4 WEEK), ONE-TIME DOSE
     Route: 042
     Dates: start: 20230908
  9. INFLECTRA [Suspect]
     Active Substance: INFLIXIMAB-DYYB
     Dosage: 670 MG, AFTER 3 WEEKS AND 4 DAYS,(10 MG/KG EVERY 4 WEEK)
     Route: 042
     Dates: start: 20231003
  10. INFLECTRA [Suspect]
     Active Substance: INFLIXIMAB-DYYB
     Dosage: 670 MG, AFTER 4 WEEKS
     Route: 042
     Dates: start: 20231102
  11. INFLECTRA [Suspect]
     Active Substance: INFLIXIMAB-DYYB
     Dosage: 670 MG, AFTER 4 WEEKS
     Route: 042
     Dates: start: 20231130
  12. INFLECTRA [Suspect]
     Active Substance: INFLIXIMAB-DYYB
     Dosage: 670 MG, AFTER 4 WEEKS
     Route: 042
     Dates: start: 20231130
  13. INFLECTRA [Suspect]
     Active Substance: INFLIXIMAB-DYYB
     Dosage: 670 MG (10 MG/KG), EVERY 4 WEEKS
     Route: 042
     Dates: start: 20231228
  14. INFLECTRA [Suspect]
     Active Substance: INFLIXIMAB-DYYB
     Dosage: 10 MG/KG, EVERY 4 WEEKS (670 MG 3 WEEKS AND 4 DAYS)
     Route: 042
     Dates: start: 20240123
  15. INSULIN PORK\INSULIN PURIFIED PORK [Concomitant]
     Active Substance: INSULIN PORK\INSULIN PURIFIED PORK
     Dosage: 1 DF
  16. LEVOFLOXACIN [Concomitant]
     Active Substance: LEVOFLOXACIN
     Dosage: 1 DF
  17. PREDNISONE [Concomitant]
     Active Substance: PREDNISONE
     Dosage: 1 DF
     Dates: start: 20230124

REACTIONS (16)
  - Condition aggravated [Recovering/Resolving]
  - Herpes zoster [Not Recovered/Not Resolved]
  - Rectal haemorrhage [Unknown]
  - Therapeutic response shortened [Unknown]
  - Drug ineffective [Unknown]
  - Drug level decreased [Unknown]
  - Weight decreased [Unknown]
  - Fatigue [Not Recovered/Not Resolved]
  - Headache [Not Recovered/Not Resolved]
  - Maternal exposure during pregnancy [Unknown]
  - Off label use [Unknown]
  - Off label use [Unknown]
  - Off label use [Unknown]
  - Product use issue [Unknown]
  - Inappropriate schedule of product administration [Unknown]
  - Incorrect dose administered [Unknown]

NARRATIVE: CASE EVENT DATE: 20230101
